FAERS Safety Report 5258275-5 (Version None)
Quarter: 2007Q1

REPORT INFORMATION
  Report Type: 
  Country: None (occurrence: None)
  Receive Date: 20070305
  Receipt Date: 20070219
  Transmission Date: 20070707
  Serious: Yes (Life-Threatening, Other)
  Sender: FDA-Public Use
  Company Number: 2007RR-05891

PATIENT
  Sex: Female

DRUGS (4)
  1. PAROXETINE HCL [Suspect]
     Dosage: 20 MG, UNK, UNKNOWN
     Dates: start: 19960201
  2. ACETAMINOPHEN [Suspect]
  3. ALCOHOL (ALCOHOL) [Suspect]
  4. CO-PROXAMOL [Concomitant]

REACTIONS (7)
  - DISTURBANCE IN ATTENTION [None]
  - DRUG WITHDRAWAL SYNDROME [None]
  - MULTIPLE DRUG OVERDOSE [None]
  - PANIC ATTACK [None]
  - POOR QUALITY SLEEP [None]
  - STRESS AT WORK [None]
  - SUICIDE ATTEMPT [None]
